FAERS Safety Report 8869442 (Version 1)
Quarter: 2012Q4

REPORT INFORMATION
  Report Type: 
  Country: US (occurrence: US)
  Receive Date: 20121023
  Receipt Date: 20121023
  Transmission Date: 20130627
  Serious: No
  Sender: FDA-Public Use
  Company Number: US-AMGEN-USASP2012050316

PATIENT
  Age: 70 Year
  Sex: Female
  Weight: 61.22 kg

DRUGS (9)
  1. ENBREL [Suspect]
     Indication: PRODUCT USED FOR UNKNOWN INDICATION
     Dosage: 50 mg, qwk
     Route: 058
  2. METHOTREXATE [Concomitant]
     Dosage: 2.5 mg, UNK
  3. FOLIC ACID [Concomitant]
  4. TOPROL [Concomitant]
     Dosage: 50 mg, UNK
  5. RAMIPRIL [Concomitant]
     Dosage: 10 mg, UNK
  6. HYDROXYCHLOROQUINE [Concomitant]
     Dosage: 200 mg, UNK
  7. SIMVASTATIN [Concomitant]
     Dosage: 40 mg, UNK
  8. ASPIRIN (E.C.) [Concomitant]
     Dosage: 81 mg, UNK
  9. CALCIUM +D                         /07511201/ [Concomitant]
     Dosage: UNK

REACTIONS (1)
  - Cellulitis [Recovered/Resolved]
